FAERS Safety Report 9208073 (Version 3)
Quarter: 2013Q4

REPORT INFORMATION
  Report Type: Spontaneous
  Country: US (occurrence: US)
  Receive Date: 20130403
  Receipt Date: 20131226
  Transmission Date: 20140711
  Serious: Yes (Hospitalization, Other)
  Sender: FDA-Public Use
  Company Number: US-B.I. PHARMACEUTICALS,INC./RIDGEFIELD-2013-BI-08820BP

PATIENT
  Age: 61 Year
  Sex: Male
  Weight: 155.13 kg

DRUGS (5)
  1. PRADAXA [Suspect]
     Indication: ATRIAL FIBRILLATION
     Dates: start: 201101, end: 201103
  2. NEXIUM [Concomitant]
  3. LAZIX [Concomitant]
  4. MCFORMIN [Concomitant]
  5. VITAMIN [Concomitant]

REACTIONS (4)
  - Gastrointestinal haemorrhage [Unknown]
  - Haemorrhage [Unknown]
  - Rectal haemorrhage [Unknown]
  - Coma [Unknown]
